FAERS Safety Report 6074202-5 (Version None)
Quarter: 2009Q1

REPORT INFORMATION
  Report Type: 
  Country: None (occurrence: None)
  Receive Date: 20090211
  Receipt Date: 20090203
  Transmission Date: 20090719
  Serious: Yes (Hospitalization)
  Sender: FDA-Public Use
  Company Number: AU-AVENTIS-200911211GDDC

PATIENT
  Age: 59 Year
  Sex: Male
  Weight: 91.9 kg

DRUGS (2)
  1. LANTUS [Suspect]
     Route: 058
     Dates: start: 20081009
  2. APIDRA [Suspect]
     Route: 058
     Dates: start: 20081009

REACTIONS (1)
  - ABDOMINAL PAIN [None]
